FAERS Safety Report 23121613 (Version 1)
Quarter: 2023Q4

REPORT INFORMATION
  Report Type: Spontaneous
  Country: US (occurrence: US)
  Receive Date: 20231029
  Receipt Date: 20231029
  Transmission Date: 20240109
  Serious: Yes (Hospitalization)
  Sender: FDA-Public Use
  Company Number: US-STRIDES ARCOLAB LIMITED-2023SP016061

PATIENT

DRUGS (6)
  1. PREDNISOLONE [Suspect]
     Active Substance: PREDNISOLONE
     Indication: Product used for unknown indication
     Dosage: UNK, (MOTHER DOSE: 20 MILLIGRAM PER DAY)
     Route: 064
  2. IBUPROFEN [Suspect]
     Active Substance: IBUPROFEN
     Indication: Product used for unknown indication
     Dosage: UNK, (MOTHER DOSE: 800 MILLIGRAM, THREE TIMES PER DAY)
     Route: 064
  3. ANAKINRA [Suspect]
     Active Substance: ANAKINRA
     Indication: Product used for unknown indication
     Dosage: UNK, (MOTHER DOSE: 100 MILLIGRAM PER DAY) (INJECTION)
     Route: 064
  4. ANAKINRA [Suspect]
     Active Substance: ANAKINRA
     Dosage: UNK (MOTHER DOSE: 2-4 INJECTIONS OF 100 MG PER WEEK)
     Route: 064
  5. ANAKINRA [Suspect]
     Active Substance: ANAKINRA
     Dosage: UNK (MOTHER DOSE: 50 MILLIGRAM PER DAY) (INJECTION)
     Route: 064
  6. NIFEDIPINE [Suspect]
     Active Substance: NIFEDIPINE
     Indication: Product used for unknown indication
     Dosage: UNK, (MOTHER DOSE: 30 MILLIGRAM PER DAY)
     Route: 064

REACTIONS (2)
  - Premature baby [Unknown]
  - Foetal exposure during pregnancy [Unknown]
